FAERS Safety Report 5533377-4 (Version None)
Quarter: 2007Q4

REPORT INFORMATION
  Report Type: 
  Country: None (occurrence: None)
  Receive Date: 20071128
  Receipt Date: 20071121
  Transmission Date: 20080405
  Serious: Yes (Hospitalization, Other)
  Sender: FDA-Public Use
  Company Number: 2007SP018881

PATIENT
  Age: 32 Year
  Sex: Male

DRUGS (6)
  1. PEG-INTRON [Suspect]
     Indication: HEPATITIS C
     Dosage: 96 MCG;QW;SC
     Route: 058
     Dates: start: 20070809
  2. REBETOL [Suspect]
     Indication: HEPATITIS C
     Dosage: 800 MG;QD;PO
     Route: 048
     Dates: start: 20070809
  3. CELEXA (CON.) [Concomitant]
  4. ZANTAC (CON.) [Concomitant]
  5. KEPPRA (CON.) [Concomitant]
  6. PROVIGIL (CON.) [Concomitant]

REACTIONS (20)
  - ABNORMAL BEHAVIOUR [None]
  - ALTERED STATE OF CONSCIOUSNESS [None]
  - AMMONIA INCREASED [None]
  - ANGER [None]
  - ANXIETY [None]
  - BALANCE DISORDER [None]
  - CONVULSION [None]
  - DIZZINESS [None]
  - DYSPEPSIA [None]
  - DYSPNOEA [None]
  - FEELING ABNORMAL [None]
  - HYPOAESTHESIA [None]
  - INJECTION SITE ULCER [None]
  - MEMORY IMPAIRMENT [None]
  - MENTAL STATUS CHANGES [None]
  - MIDDLE INSOMNIA [None]
  - NASAL MUCOSAL DISORDER [None]
  - NAUSEA [None]
  - OPEN WOUND [None]
  - SELF MUTILATION [None]
